FAERS Safety Report 6258968-7 (Version None)
Quarter: 2009Q3

REPORT INFORMATION
  Report Type: 
  Country: None (occurrence: None)
  Receive Date: 20090707
  Receipt Date: 20090630
  Transmission Date: 20100115
  Serious: Yes (Other)
  Sender: FDA-Public Use
  Company Number: US-AMGEN-KDL328555

PATIENT
  Age: 55 Year
  Sex: Female
  Weight: 65.4 kg

DRUGS (6)
  1. ENBREL [Suspect]
     Indication: RHEUMATOID ARTHRITIS
     Route: 058
     Dates: start: 20040518
  2. METHOTREXATE [Concomitant]
     Dates: start: 20020521
  3. PREDNISONE TAB [Concomitant]
     Dates: start: 20030418
  4. MOBIC [Concomitant]
  5. CELEXA [Concomitant]
  6. ARICEPT [Concomitant]

REACTIONS (1)
  - DEMENTIA ALZHEIMER'S TYPE [None]
